FAERS Safety Report 7451478-0 (Version None)
Quarter: 2011Q2

REPORT INFORMATION
  Report Type: 
  Country: None (occurrence: None)
  Receive Date: 20110502
  Receipt Date: 20110421
  Transmission Date: 20111010
  Serious: Yes (Hospitalization, Other)
  Sender: FDA-Public Use
  Company Number: US-ASTRAZENECA-2011SE05323

PATIENT
  Age: 585 Month
  Sex: Male
  Weight: 83.9 kg

DRUGS (8)
  1. SEROQUEL [Suspect]
     Indication: BIPOLAR DISORDER
     Route: 048
     Dates: start: 20090101, end: 20110401
  2. LEVOTHYROXINE SODIUM [Concomitant]
     Indication: THYROID DISORDER
     Route: 048
  3. SEROQUEL [Suspect]
     Route: 048
  4. RAMPERIL [Concomitant]
     Route: 048
  5. METOPROLOL SUCCINATE [Concomitant]
     Indication: HYPERTENSION
  6. LAMICTAL [Concomitant]
     Route: 048
  7. LEXAPRO [Concomitant]
     Indication: DEPRESSION
     Route: 048
  8. CLONAZEPAM [Concomitant]
     Indication: ANXIETY
     Route: 048

REACTIONS (12)
  - INSOMNIA [None]
  - DRUG INEFFECTIVE [None]
  - SUICIDAL IDEATION [None]
  - THERAPEUTIC RESPONSE UNEXPECTED [None]
  - DRUG DOSE OMISSION [None]
  - HALLUCINATION [None]
  - AMNESIA [None]
  - POOR PERIPHERAL CIRCULATION [None]
  - CHEST PAIN [None]
  - BLOOD PRESSURE INCREASED [None]
  - MENTAL DISORDER [None]
  - PARAESTHESIA [None]
